FAERS Safety Report 15655491 (Version 1)
Quarter: 2018Q4

REPORT INFORMATION
  Report Type: Spontaneous
  Country: US (occurrence: US)
  Receive Date: 20181115
  Receipt Date: 20181115
  Transmission Date: 20190205
  Serious: Yes (Hospitalization)
  Sender: FDA-Public Use
  Company Number: None

PATIENT
  Age: 71 Year
  Sex: Female
  Weight: 29.21 kg

DRUGS (2)
  1. IPILIMUMAB [Suspect]
     Active Substance: IPILIMUMAB
     Indication: THYROID CANCER
     Dosage: ?          OTHER FREQUENCY:Q6W;?
     Route: 042
     Dates: start: 201811
  2. NIVOLUMAB [Suspect]
     Active Substance: NIVOLUMAB
     Indication: THYROID CANCER
     Dosage: ?          OTHER FREQUENCY:Q2W;?
     Route: 042

REACTIONS (7)
  - Dyspnoea [None]
  - Pleural effusion [None]
  - Dysphagia [None]
  - Back pain [None]
  - Haemoglobin decreased [None]
  - Rib fracture [None]
  - Musculoskeletal chest pain [None]

NARRATIVE: CASE EVENT DATE: 20181113
